FAERS Safety Report 14005219 (Version 1)
Quarter: 2017Q3

REPORT INFORMATION
  Report Type: Spontaneous
  Country: JP (occurrence: JP)
  Receive Date: 20170922
  Receipt Date: 20170922
  Transmission Date: 20171128
  Serious: Yes (Other)
  Sender: FDA-Public Use
  Company Number: JP-TEVA-809574ROM

PATIENT
  Age: 70 Year
  Sex: Female

DRUGS (3)
  1. SALAZOSULFAPYRIDINE [Concomitant]
     Active Substance: SULFASALAZINE
     Route: 065
  2. PROGRAF [Concomitant]
     Active Substance: TACROLIMUS\TACROLIMUS ANHYDROUS
     Route: 065
  3. ACTONEL [Suspect]
     Active Substance: RISEDRONATE SODIUM
     Indication: PRODUCT USED FOR UNKNOWN INDICATION
     Dosage: 75 MILLIGRAM DAILY; 75 MG, QD
     Route: 048
     Dates: start: 20110617, end: 20170807

REACTIONS (1)
  - Osteonecrosis of external auditory canal [Not Recovered/Not Resolved]

NARRATIVE: CASE EVENT DATE: 20110617
